FAERS Safety Report 4840296-5 (Version None)
Quarter: 2005Q4

REPORT INFORMATION
  Report Type: 
  Country: None (occurrence: None)
  Receive Date: 20051020
  Receipt Date: 20050812
  Transmission Date: 20060501
  Serious: No
  Sender: FDA-Public Use
  Company Number: 2005BH001135

PATIENT
  Age: 57 Year
  Sex: Male
  Weight: 68.4932 kg

DRUGS (23)
  1. EXTRANEAL [Suspect]
     Indication: PERITONEAL DIALYSIS
     Dosage: 2 L; EVERY DAY; IP
     Route: 033
     Dates: start: 20050712, end: 20050812
  2. EPOETIN NOS [Concomitant]
  3. PHOSLO [Concomitant]
  4. ROCALTROL [Concomitant]
  5. M.V.I. [Concomitant]
  6. IRON [Concomitant]
  7. ASPIRIN [Concomitant]
  8. MEVACOR [Concomitant]
  9. MUPIROCIN [Concomitant]
  10. DOSS [Concomitant]
  11. COZAAR [Concomitant]
  12. LASIX [Concomitant]
  13. ADALAT [Concomitant]
  14. ATENOLOL [Concomitant]
  15. TEMAZEPAM [Concomitant]
  16. SORBITOL [Concomitant]
  17. POLYETHYLENE GLYCOL [Concomitant]
  18. VICODIN [Concomitant]
  19. NOVOLIN 70/30 [Concomitant]
  20. CLONIDINE [Concomitant]
  21. PRILOSEC [Concomitant]
  22. REGLAN [Concomitant]
  23. HYDROXYZINE HYDROCHLORIDE [Concomitant]

REACTIONS (5)
  - CHILLS [None]
  - RASH ERYTHEMATOUS [None]
  - RASH MACULAR [None]
  - RASH PAPULAR [None]
  - RASH PRURITIC [None]
